FAERS Safety Report 18374045 (Version 6)
Quarter: 2021Q2

REPORT INFORMATION
  Report Type: Spontaneous
  Country: US (occurrence: US)
  Receive Date: 20201012
  Receipt Date: 20210427
  Transmission Date: 20210717
  Serious: No
  Sender: FDA-Public Use
  Company Number: US-BIOGEN-2020BI00932606

PATIENT
  Sex: Female

DRUGS (1)
  1. TYSABRI [Suspect]
     Active Substance: NATALIZUMAB
     Indication: MULTIPLE SCLEROSIS
     Route: 065
     Dates: start: 20070731, end: 20200623

REACTIONS (6)
  - Fall [Recovered/Resolved]
  - Enzyme level increased [Unknown]
  - Balance disorder [Unknown]
  - Blood test abnormal [Unknown]
  - Tremor [Unknown]
  - Malaise [Not Recovered/Not Resolved]
